FAERS Safety Report 7186577-4 (Version None)
Quarter: 2010Q4

REPORT INFORMATION
  Report Type: 
  Country: None (occurrence: None)
  Receive Date: 20101222
  Receipt Date: 20101215
  Transmission Date: 20110411
  Serious: Yes (Other)
  Sender: FDA-Public Use
  Company Number: CA-ALLERGAN-1008299US

PATIENT
  Age: 54 Year
  Sex: Female

DRUGS (1)
  1. BOTOX COSMETIC [Suspect]
     Indication: SKIN WRINKLING
     Dosage: 25 UNITS, SINGLE
     Route: 030
     Dates: start: 20091113, end: 20091113

REACTIONS (14)
  - ARRHYTHMIA [None]
  - ASTHENIA [None]
  - CELLULITIS [None]
  - DIZZINESS [None]
  - EYE IRRITATION [None]
  - EYE PAIN [None]
  - EYELID PTOSIS [None]
  - FATIGUE [None]
  - FIBROMYALGIA [None]
  - HYPERHIDROSIS [None]
  - LACRIMATION INCREASED [None]
  - MIGRAINE [None]
  - MOOD ALTERED [None]
  - NASAL INFLAMMATION [None]
